FAERS Safety Report 5116637-0 (Version None)
Quarter: 2006Q3

REPORT INFORMATION
  Report Type: 
  Country: None (occurrence: None)
  Receive Date: 20060928
  Receipt Date: 20060925
  Transmission Date: 20061208
  Serious: Yes (Hospitalization)
  Sender: FDA-Public Use
  Company Number: US-GLAXOSMITHKLINE-A0621315A

PATIENT
  Age: 72 Year
  Sex: Female

DRUGS (4)
  1. ADVAIR DISKUS 100/50 [Suspect]
     Indication: ASTHMA
     Route: 055
     Dates: start: 20060501
  2. AVAPRO [Concomitant]
  3. FOSAMAX D [Concomitant]
  4. PRILOSEC [Concomitant]

REACTIONS (2)
  - DYSPNOEA [None]
  - SYNCOPE [None]
